FAERS Safety Report 10239998 (Version 1)
Quarter: 2014Q2

REPORT INFORMATION
  Report Type: Spontaneous
  Country: GB (occurrence: GB)
  Receive Date: 20140616
  Receipt Date: 20140616
  Transmission Date: 20141212
  Serious: Yes (Other)
  Sender: FDA-Public Use
  Company Number: GB-BAXTER-2014BAX029989

PATIENT
  Sex: Female

DRUGS (27)
  1. WATER FOR INJECTIONS BP [Suspect]
     Indication: MEDICATION DILUTION
     Route: 042
  2. WATER FOR INJECTIONS BP [Suspect]
     Route: 042
  3. AMINOVEN [Suspect]
     Indication: PARENTERAL NUTRITION
     Route: 042
  4. AMINOVEN [Suspect]
     Route: 042
  5. GLUCOSE 50% [Suspect]
     Indication: PARENTERAL NUTRITION
     Route: 042
  6. GLUCOSE 50% [Suspect]
     Route: 042
  7. SODIUM CHLORIDE [Suspect]
     Indication: PARENTERAL NUTRITION
     Route: 042
  8. SODIUM CHLORIDE [Suspect]
     Route: 042
  9. POTASSIUM CHLORIDE [Suspect]
     Indication: PARENTERAL NUTRITION
     Route: 042
  10. POTASSIUM CHLORIDE [Suspect]
     Route: 042
  11. CALCIUM CHLORIDE [Suspect]
     Indication: PARENTERAL NUTRITION
     Route: 042
  12. CALCIUM CHLORIDE [Suspect]
     Route: 042
  13. MAGNESIUM SULPHATE [Suspect]
     Indication: PARENTERAL NUTRITION
     Route: 042
  14. MAGNESIUM SULPHATE [Suspect]
     Route: 042
  15. SODIUM GLYCEROPHOSPHATE [Suspect]
     Indication: PARENTERAL NUTRITION
     Route: 042
  16. SODIUM GLYCEROPHOSPHATE [Suspect]
     Route: 042
  17. SMOFLIPID [Suspect]
     Indication: PARENTERAL NUTRITION
     Route: 042
  18. PEDITRACE [Suspect]
     Indication: PARENTERAL NUTRITION
     Route: 042
  19. PEDITRACE [Suspect]
     Route: 042
  20. IRON CHLORIDE [Suspect]
     Indication: PARENTERAL NUTRITION
     Route: 042
  21. IRON CHLORIDE [Suspect]
     Route: 042
  22. SOLIVITO N [Suspect]
     Indication: PARENTERAL NUTRITION
     Route: 042
  23. SOLIVITO N [Suspect]
     Route: 042
  24. RANITIDINE [Suspect]
     Indication: PARENTERAL NUTRITION
     Route: 042
  25. RANITIDINE [Suspect]
     Route: 042
  26. ASCORBIC ACID [Suspect]
     Indication: PARENTERAL NUTRITION
     Route: 042
  27. ASCORBIC ACID [Suspect]
     Route: 042

REACTIONS (2)
  - Bacillus bacteraemia [Recovered/Resolved]
  - Product compounding quality issue [None]
